FAERS Safety Report 4647143-5 (Version None)
Quarter: 2005Q2

REPORT INFORMATION
  Report Type: 
  Country: None (occurrence: None)
  Receive Date: 20050428
  Receipt Date: 20050418
  Transmission Date: 20051028
  Serious: Yes (Death, Disabling)
  Sender: FDA-Public Use
  Company Number: US-JNJFOC-20050404914

PATIENT
  Sex: Male

DRUGS (7)
  1. BLINDED; ABCIXIMA [Suspect]
     Route: 042
  2. BLINDED; ABCIXIMA [Suspect]
     Route: 042
  3. PLACEBO [Suspect]
     Route: 042
  4. PLACEBO [Suspect]
     Route: 042
  5. LISINOPRIL [Concomitant]
     Route: 049
  6. SIMVASTATIN [Concomitant]
     Route: 049
  7. ASPIRIN [Concomitant]
     Route: 049

REACTIONS (3)
  - DRUG INTERACTION [None]
  - HAEMORRHAGIC TRANSFORMATION STROKE [None]
  - STROKE IN EVOLUTION [None]
